FAERS Safety Report 6163621-4 (Version None)
Quarter: 2009Q2

REPORT INFORMATION
  Report Type: 
  Country: None (occurrence: None)
  Receive Date: 20090420
  Receipt Date: 20080804
  Transmission Date: 20091009
  Serious: Yes (Other)
  Sender: FDA-Public Use
  Company Number: SPV1-2008-01650

PATIENT
  Age: 52 Year
  Sex: Female
  Weight: 53.5 kg

DRUGS (2)
  1. LIALDA [Suspect]
     Indication: COLITIS ULCERATIVE
     Dosage: 1.2 G, 1X/DAY:QD, ORAL : 2.4 G, 1X/DAY:QD, ORAL
     Route: 048
     Dates: start: 20080715, end: 20080721
  2. LIALDA [Suspect]
     Indication: COLITIS ULCERATIVE
     Dosage: 1.2 G, 1X/DAY:QD, ORAL : 2.4 G, 1X/DAY:QD, ORAL
     Route: 048
     Dates: start: 20080722, end: 20080722

REACTIONS (3)
  - ANXIETY [None]
  - DIARRHOEA HAEMORRHAGIC [None]
  - PALLOR [None]
